FAERS Safety Report 8584064-X (Version None)
Quarter: 2012Q3

REPORT INFORMATION
  Report Type: 
  Country: None (occurrence: None)
  Receive Date: 20120810
  Receipt Date: 20120730
  Transmission Date: 20120928
  Serious: No
  Sender: FDA-Public Use
  Company Number: US-009507513-1207USA013105

PATIENT

DRUGS (2)
  1. ZIOPTAN [Suspect]
     Indication: GLAUCOMA
     Dosage: UNK
     Route: 047
     Dates: start: 20120718
  2. COUMADIN [Concomitant]

REACTIONS (4)
  - ABNORMAL FAECES [None]
  - DYSPEPSIA [None]
  - CONSTIPATION [None]
  - FLATULENCE [None]
